FAERS Safety Report 25979101 (Version 1)
Quarter: 2025Q4

REPORT INFORMATION
  Report Type: Spontaneous
  Country: IN (occurrence: IN)
  Receive Date: 20251030
  Receipt Date: 20251030
  Transmission Date: 20260118
  Serious: Yes (Hospitalization)
  Sender: REGENERON
  Company Number: IN-BAYER-2025A140979

PATIENT
  Age: 71 Year
  Sex: Male

DRUGS (1)
  1. EYLEA [Suspect]
     Active Substance: AFLIBERCEPT
     Indication: Product used for unknown indication
     Dosage: 2 MG, 40 MG/ML, SOLUTION FOR INJECTION
     Route: 031

REACTIONS (1)
  - Macular ischaemia [Not Recovered/Not Resolved]

NARRATIVE: CASE EVENT DATE: 20251012
